FAERS Safety Report 5826578-9 (Version None)
Quarter: 2008Q3

REPORT INFORMATION
  Report Type: 
  Country: None (occurrence: None)
  Receive Date: 20080730
  Receipt Date: 20080718
  Transmission Date: 20090109
  Serious: Yes (Other)
  Sender: FDA-Public Use
  Company Number: US-RANBAXY-2008US-16682

PATIENT

DRUGS (2)
  1. ISOTRETINOIN [Suspect]
     Indication: DRUG USE FOR UNKNOWN INDICATION
     Dosage: 10 MG, UNK
     Route: 048
  2. ISOTRETINOIN [Suspect]
     Dosage: 20 MG, UNK

REACTIONS (2)
  - CATARACT OPERATION [None]
  - TREATMENT NONCOMPLIANCE [None]
